FAERS Safety Report 14632740 (Version 17)
Quarter: 2018Q3

REPORT INFORMATION
  Report Type: Report from Study
  Country: CA (occurrence: CA)
  Receive Date: 20180313
  Receipt Date: 20180920
  Transmission Date: 20181010
  Serious: Yes (Hospitalization, Other)
  Sender: FDA-Public Use
  Company Number: CA-TAKEDA-2018TUS004093

PATIENT
  Age: 58 Year
  Sex: Male

DRUGS (6)
  1. PREDNISONE. [Concomitant]
     Active Substance: PREDNISONE
     Dosage: 50 UNK, UNK
  2. PREDNISONE. [Concomitant]
     Active Substance: PREDNISONE
     Dosage: 25 MG, UNK
  3. PREDNISONE. [Concomitant]
     Active Substance: PREDNISONE
     Dosage: 35 MG, UNK
     Dates: end: 20180910
  4. VEDOLIZUMAB [Suspect]
     Active Substance: VEDOLIZUMAB
     Indication: CROHN^S DISEASE
     Dosage: 300 MG, UNK
     Route: 042
     Dates: start: 20180124
  5. CALCIUM [Concomitant]
     Active Substance: CALCIUM
     Dosage: 600 MG, QD
  6. VITAMIN D [Concomitant]
     Active Substance: CHOLECALCIFEROL
     Indication: LIVER DISORDER
     Dosage: UNK UNK, 1/WEEK

REACTIONS (7)
  - Malaise [Recovering/Resolving]
  - Crohn^s disease [Recovering/Resolving]
  - Liver disorder [Not Recovered/Not Resolved]
  - Vision blurred [Not Recovered/Not Resolved]
  - Post procedural infection [Unknown]
  - Poor quality sleep [Not Recovered/Not Resolved]
  - Bile duct cancer [Not Recovered/Not Resolved]

NARRATIVE: CASE EVENT DATE: 2018
